FAERS Safety Report 18315716 (Version 3)
Quarter: 2020Q4

REPORT INFORMATION
  Report Type: Report from Study
  Country: IT (occurrence: IT)
  Receive Date: 20200926
  Receipt Date: 20201009
  Transmission Date: 20210113
  Serious: Yes (Other)
  Sender: FDA-Public Use
  Company Number: IT-TEVA-2020-IT-1830980

PATIENT
  Age: 3 Month
  Sex: Male
  Weight: 7 kg

DRUGS (3)
  1. PREFOLIC 15 COMPRESSE [Concomitant]
     Route: 048
  2. FLUOXETINA-RATIOPHARM 20 MG COMPRESSE SOLUBILI [Suspect]
     Active Substance: FLUOXETINE HYDROCHLORIDE
     Indication: PANIC ATTACK
     Route: 063
     Dates: start: 20200311
  3. ARIXTRA [Suspect]
     Active Substance: FONDAPARINUX SODIUM
     Indication: THROMBOPHLEBITIS
     Route: 063
     Dates: start: 20200320, end: 20200520

REACTIONS (2)
  - Diarrhoea [Recovered/Resolved]
  - Haematochezia [Recovered/Resolved]

NARRATIVE: CASE EVENT DATE: 20200705
